FAERS Safety Report 14909964 (Version 3)
Quarter: 2018Q2

REPORT INFORMATION
  Report Type: Spontaneous
  Country: BR (occurrence: BR)
  Receive Date: 20180517
  Receipt Date: 20180626
  Transmission Date: 20180711
  Serious: Yes (Other)
  Sender: FDA-Public Use
  Company Number: BR-PFIZER INC-2018194275

PATIENT
  Age: 14 Year
  Sex: Male

DRUGS (6)
  1. ZOLOFT [Suspect]
     Active Substance: SERTRALINE HYDROCHLORIDE
     Dosage: 100 MG, UNK
     Dates: start: 2018
  2. DEPAKINE /00228501/ [Concomitant]
     Active Substance: VALPROIC ACID
     Dosage: 250
     Dates: start: 2012
  3. HALDOL [Concomitant]
     Active Substance: HALOPERIDOL
     Dosage: UNK
  4. ZOLOFT [Suspect]
     Active Substance: SERTRALINE HYDROCHLORIDE
     Indication: DEPRESSION
     Dosage: 50 MG, 1 TABLET IN THE MORNING
     Dates: start: 201803, end: 2018
  5. HALDOL [Concomitant]
     Active Substance: HALOPERIDOL
     Dosage: UNK
     Dates: start: 2012
  6. OLANZAPINE. [Concomitant]
     Active Substance: OLANZAPINE
     Dosage: 10 MG, 2X/DAY
     Dates: start: 2012

REACTIONS (3)
  - Suicide attempt [Recovered/Resolved]
  - Agitation [Unknown]
  - Irritability [Recovered/Resolved]

NARRATIVE: CASE EVENT DATE: 20180516
